FAERS Safety Report 8124501-8 (Version None)
Quarter: 2012Q1

REPORT INFORMATION
  Report Type: 
  Country: None (occurrence: None)
  Receive Date: 20120209
  Receipt Date: 20120130
  Transmission Date: 20120608
  Serious: Yes (Death, Hospitalization, Other)
  Sender: FDA-Public Use
  Company Number: US-ELI_LILLY_AND_COMPANY-US201112001136

PATIENT
  Sex: Female

DRUGS (1)
  1. FORTEO [Suspect]
     Dosage: 20 UG, QD
     Route: 058
     Dates: start: 20100729

REACTIONS (5)
  - CARDIAC FAILURE CHRONIC [None]
  - HYPOPHAGIA [None]
  - PULMONARY OEDEMA [None]
  - DEATH [None]
  - INTESTINAL ISCHAEMIA [None]
